FAERS Safety Report 21038361 (Version 1)
Quarter: 2022Q3

REPORT INFORMATION
  Report Type: Spontaneous
  Country: CZ (occurrence: CZ)
  Receive Date: 20220704
  Receipt Date: 20220704
  Transmission Date: 20221027
  Serious: Yes (Other)
  Sender: FDA-Public Use
  Company Number: CZ-CELLTRION INC.-2022CZ010175

PATIENT

DRUGS (4)
  1. RITUXIMAB [Suspect]
     Active Substance: RITUXIMAB
     Indication: Thrombotic thrombocytopenic purpura
     Dosage: 375 MG/M2, EVERY 1 WEEK (OVERALL 4 DOSES WERE GIVEN)
     Route: 042
  2. SOLU-MEDROL [Concomitant]
     Active Substance: METHYLPREDNISOLONE SODIUM SUCCINATE
     Indication: Thrombotic thrombocytopenic purpura
  3. CABLIVI [CAPLACIZUMAB YHDP] [Concomitant]
     Indication: Thrombotic thrombocytopenic purpura
     Dosage: 10 MG INTRAVENOUSLY BEFORE THE FIRST PLASMAPHERESIS
     Route: 042
  4. CABLIVI [CAPLACIZUMAB YHDP] [Concomitant]
     Dosage: 10 MG DAILY SUBCUTANEOUS AFTER THE TPE
     Route: 058

REACTIONS (2)
  - Sepsis [Recovering/Resolving]
  - Off label use [Unknown]
